FAERS Safety Report 8935475 (Version 1)
Quarter: 2012Q4

REPORT INFORMATION
  Report Type: Spontaneous
  Country: KR (occurrence: None)
  Receive Date: 20121121
  Receipt Date: 20121121
  Transmission Date: 20130627
  Serious: Yes (Other)
  Sender: FDA-Public Use
  Company Number: SP06213

PATIENT
  Age: 31 Year
  Sex: Female

DRUGS (1)
  1. COLAZAL [Suspect]
     Indication: ULCERATIVE COLITIS
     Dosage: (2.25 gm, 3 in 1 D)
     Route: 048

REACTIONS (8)
  - Chest pain [None]
  - Cough [None]
  - Pleural effusion [None]
  - Lymphocytosis [None]
  - Organising pneumonia [None]
  - Vasculitis necrotising [None]
  - Vasculitis [None]
  - Toxicity to various agents [None]
